FAERS Safety Report 9376919 (Version 1)
Quarter: 2013Q3

REPORT INFORMATION
  Report Type: Spontaneous
  Country: FR (occurrence: FR)
  Receive Date: 20130701
  Receipt Date: 20130701
  Transmission Date: 20140515
  Serious: Yes (Hospitalization)
  Sender: FDA-Public Use
  Company Number: PHHY2013FR066815

PATIENT
  Age: 62 Year
  Sex: Male

DRUGS (5)
  1. AFINITOR [Suspect]
     Indication: RENAL CANCER
     Dosage: 10 MG, QD
     Route: 048
     Dates: start: 2012, end: 20130531
  2. ORACILLINE [Concomitant]
     Dosage: 2 MIU, QD
  3. FORTIMEL [Concomitant]
     Dosage: 3 DF, QD
  4. MOPRAL [Concomitant]
     Dosage: 40 MG, QD
     Route: 048
  5. STILNOX [Concomitant]
     Dosage: 10 MG, PRN
     Route: 048

REACTIONS (1)
  - Lung disorder [Unknown]
